FAERS Safety Report 9056318 (Version 2)
Quarter: 2013Q1

REPORT INFORMATION
  Report Type: Spontaneous
  Country: US (occurrence: US)
  Receive Date: 20130204
  Receipt Date: 20130320
  Transmission Date: 20140127
  Serious: Yes (Other)
  Sender: FDA-Public Use
  Company Number: US-JNJFOC-20130114965

PATIENT
  Age: 85 Year
  Sex: Male

DRUGS (1)
  1. LEVAQUIN [Suspect]
     Indication: INFLUENZA
     Route: 065

REACTIONS (3)
  - Muscle spasms [Unknown]
  - Musculoskeletal disorder [Unknown]
  - Tendon injury [Unknown]
